FAERS Safety Report 6221342-3 (Version None)
Quarter: 2009Q2

REPORT INFORMATION
  Report Type: 
  Country: None (occurrence: None)
  Receive Date: 20090608
  Receipt Date: 20090525
  Transmission Date: 20091009
  Serious: Yes (Hospitalization)
  Sender: FDA-Public Use
  Company Number: FRP09000627

PATIENT
  Age: 75 Year
  Sex: Female

DRUGS (3)
  1. ACTONEL [Suspect]
     Indication: OSTEOPOROSIS
     Dosage: 35 MG, 1/WEEK, ORAL
     Route: 048
     Dates: start: 20090311, end: 20090318
  2. PLAVIX [Concomitant]
  3. SEROTONIN ANTAGONISTS [Concomitant]

REACTIONS (3)
  - DIARRHOEA [None]
  - LEUKOCYTOSIS [None]
  - PYREXIA [None]
